FAERS Safety Report 21309752 (Version 3)
Quarter: 2022Q3

REPORT INFORMATION
  Report Type: Report from Study
  Country: US (occurrence: US)
  Receive Date: 20220908
  Receipt Date: 20220913
  Transmission Date: 20221026
  Serious: Yes (Death, Other)
  Sender: FDA-Public Use
  Company Number: US-ABBVIE-22K-163-4531917-00

PATIENT
  Age: 79 Year
  Sex: Male
  Weight: 86.260 kg

DRUGS (1)
  1. VENCLEXTA [Suspect]
     Active Substance: VENETOCLAX
     Indication: Acute myeloid leukaemia
     Route: 048
     Dates: start: 20220822, end: 20220830

REACTIONS (5)
  - Myelodysplastic syndrome [Fatal]
  - White blood cell count decreased [Fatal]
  - Pneumonia [Fatal]
  - Immunodeficiency [Unknown]
  - Pyrexia [Unknown]

NARRATIVE: CASE EVENT DATE: 20220904
